APPROVED DRUG PRODUCT: BUCAPSOL
Active Ingredient: BUSPIRONE HYDROCHLORIDE
Strength: 15MG
Dosage Form/Route: CAPSULE;ORAL
Application: A218628 | Product #003
Applicant: EPIC PHARMA LLC
Approved: Mar 13, 2025 | RLD: No | RS: Yes | Type: RX